FAERS Safety Report 5026221-5 (Version None)
Quarter: 2006Q2

REPORT INFORMATION
  Report Type: 
  Country: None (occurrence: None)
  Receive Date: 20060608
  Receipt Date: 20060531
  Transmission Date: 20061013
  Serious: Yes (Hospitalization)
  Sender: FDA-Public Use
  Company Number: 200610486BYL

PATIENT
  Age: 85 Year
  Sex: Male
  Weight: 52 kg

DRUGS (27)
  1. AVELOX [Suspect]
     Indication: LOBAR PNEUMONIA
     Dosage: 400 MG, QD, ORAL
     Route: 048
     Dates: start: 20060401, end: 20060407
  2. CIPROFLOXACIN [Suspect]
     Indication: LOBAR PNEUMONIA
     Dosage: 300 MG, BID, INTRAVENOUS
     Route: 042
     Dates: start: 20060316, end: 20060322
  3. CIPROFLOXACIN [Suspect]
     Indication: LOBAR PNEUMONIA
     Dosage: 300 MG, BID, INTRAVENOUS
     Route: 042
     Dates: start: 20060328, end: 20060331
  4. TAXOTERE [Suspect]
     Dosage: 100 MG, TOTAL, DAILY, INTRAVENO; 80 MG, TOTAL DAILY, INTRAVENOU
     Route: 042
     Dates: start: 20060217
  5. ESTRACT [Concomitant]
  6. DECADRON [Concomitant]
  7. SOLDEM [Concomitant]
  8. PRIMPERAN TAB [Concomitant]
  9. VEEN D [Concomitant]
  10. TWINPAL [Concomitant]
  11. LASIX [Concomitant]
  12. MEROPEN [Concomitant]
  13. CARBOCAIN [Concomitant]
  14. LEPETAN [Concomitant]
  15. VITA-C [Concomitant]
  16. CYANOCOBALAMIN [Concomitant]
  17. METABOLIN [Concomitant]
  18. SOSEGON INJECTION [Concomitant]
  19. ATARAX [Concomitant]
  20. KYTRIL [Concomitant]
  21. BUP-4 [Concomitant]
  22. LENDORMIN [Concomitant]
  23. PARIET [Concomitant]
  24. GASMOTIN [Concomitant]
  25. VITAMEDIN [Concomitant]
  26. PEON [Concomitant]
  27. PASIL(PAZUFLOXACIN) [Suspect]
     Indication: LOBAR PNEUMONIA
     Dosage: 500 MG BID INTRAVENOUS DRIP
     Route: 041
     Dates: start: 20060322, end: 20060327

REACTIONS (2)
  - DRUG INEFFECTIVE [None]
  - INTERSTITIAL LUNG DISEASE [None]
